FAERS Safety Report 21969645 (Version 2)
Quarter: 2024Q2

REPORT INFORMATION
  Report Type: Spontaneous
  Country: CA (occurrence: CA)
  Receive Date: 20230208
  Receipt Date: 20240517
  Transmission Date: 20240716
  Serious: Yes (Other)
  Sender: FDA-Public Use
  Company Number: CA-TAKEDA-2023TUS012187

PATIENT
  Age: 62 Year
  Sex: Female

DRUGS (7)
  1. MESALAMINE [Suspect]
     Active Substance: MESALAMINE
     Dosage: 4.8 GRAM, QD
     Route: 065
  2. MESALAMINE [Suspect]
     Active Substance: MESALAMINE
     Dosage: 1.2 GRAM, QD
     Route: 065
  3. PREDNISONE [Suspect]
     Active Substance: PREDNISONE
     Indication: Product used for unknown indication
     Dosage: 5 MILLIGRAM, QD
     Route: 048
  4. ENTOCORT [Suspect]
     Active Substance: BUDESONIDE
     Indication: Product used for unknown indication
     Dosage: 3 MILLIGRAM
     Route: 048
  5. HULIO [Suspect]
     Active Substance: ADALIMUMAB-FKJP
     Indication: Crohn^s disease
     Dosage: 40 MILLIGRAM, 1/WEEK
     Route: 058
  6. METHOTREXATE SODIUM [Concomitant]
     Active Substance: METHOTREXATE SODIUM
     Dosage: UNK
     Route: 065
  7. IMURAN [Concomitant]
     Active Substance: AZATHIOPRINE
     Dosage: UNK
     Route: 065

REACTIONS (14)
  - Inflammatory bowel disease [Unknown]
  - Haematochezia [Unknown]
  - Gastrointestinal pain [Unknown]
  - Illness [Unknown]
  - Pyrexia [Unknown]
  - Treatment failure [Unknown]
  - Joint swelling [Unknown]
  - Condition aggravated [Unknown]
  - Rash pruritic [Unknown]
  - Bowel movement irregularity [Unknown]
  - C-reactive protein abnormal [Unknown]
  - Gastrointestinal disorder [Unknown]
  - Arthralgia [Unknown]
  - Colitis [Unknown]
